FAERS Safety Report 20680288 (Version 2)
Quarter: 2022Q2

REPORT INFORMATION
  Report Type: Report from Study
  Country: KR (occurrence: KR)
  Receive Date: 20220406
  Receipt Date: 20220428
  Transmission Date: 20220720
  Serious: Yes (Hospitalization, Other)
  Sender: FDA-Public Use
  Company Number: KR-BIAL-BIAL-10185

PATIENT

DRUGS (7)
  1. OPICAPONE [Suspect]
     Active Substance: OPICAPONE
     Indication: Parkinson^s disease
     Dosage: 50 MILLIGRAM, 1X / DAY
     Route: 048
     Dates: start: 20220304, end: 20220314
  2. MIRABEGRON [Concomitant]
     Active Substance: MIRABEGRON
     Indication: Micturition disorder
     Dosage: 50 MILLIGRAM, 1X / DAY
     Route: 048
     Dates: start: 2019, end: 2022
  3. BENSERAZIDE HYDROCHLORIDE\LEVODOPA [Concomitant]
     Active Substance: BENSERAZIDE HYDROCHLORIDE\LEVODOPA
     Dosage: 200 MILLIGRAM, DAILY
     Route: 048
     Dates: start: 20210130
  4. TRIHEXIN [TRIHEXYPHENIDYL HYDROCHLORIDE] [Concomitant]
     Dosage: 2 MILLIGRAM, 1X / DAY
     Route: 048
     Dates: start: 20210130
  5. GASTIIN CR [Concomitant]
     Dosage: 15 MILLIGRAM, 1X / DAY
     Route: 048
     Dates: start: 20210130
  6. RISELTON [RIVASTIGMINE] [Concomitant]
     Dosage: 1.5 MILLIGRAM, DAILY
     Route: 048
     Dates: start: 20210130
  7. PRAPEXOLE ER [Concomitant]
     Dosage: 0.375 MILLIGRAM, 1X / DAY
     Route: 048
     Dates: start: 20210130

REACTIONS (4)
  - Headache [Recovering/Resolving]
  - Delirium [Recovering/Resolving]
  - Vomiting [Recovering/Resolving]
  - Nausea [Recovering/Resolving]

NARRATIVE: CASE EVENT DATE: 20220314
